FAERS Safety Report 7478917-3 (Version None)
Quarter: 2011Q2

REPORT INFORMATION
  Report Type: 
  Country: None (occurrence: None)
  Receive Date: 20110513
  Receipt Date: 20110509
  Transmission Date: 20111010
  Serious: Yes (Death)
  Sender: FDA-Public Use
  Company Number: TN-ROCHE-776330

PATIENT

DRUGS (2)
  1. PEGINTERFERON ALFA-2A [Suspect]
     Route: 058
     Dates: start: 20090715
  2. RIBAVIRIN [Suspect]
     Route: 048
     Dates: start: 20090715

REACTIONS (1)
  - SEPTIC SHOCK [None]
